FAERS Safety Report 13233490 (Version 2)
Quarter: 2019Q2

REPORT INFORMATION
  Report Type: Report from Study
  Country: US (occurrence: US)
  Receive Date: 20170215
  Receipt Date: 20190417
  Transmission Date: 20190711
  Serious: Yes (Hospitalization, Other)
  Sender: FDA-Public Use
  Company Number: US-BRISTOL-MYERS SQUIBB COMPANY-BMS-2017-010276

PATIENT
  Age: 64 Year
  Sex: Female

DRUGS (4)
  1. METHOTREXATE (METHOTREXATE SODIUM) [Concomitant]
     Active Substance: METHOTREXATE SODIUM
     Indication: GRAFT VERSUS HOST DISEASE
     Route: 065
  2. BLINDED ABATACEPT [Suspect]
     Active Substance: ABATACEPT
     Indication: GRAFT VERSUS HOST DISEASE
     Dosage: 906 MG, UNK
     Route: 042
     Dates: start: 20161121, end: 20161220
  3. BLINDED PLACEBO [Suspect]
     Active Substance: INVESTIGATIONAL PRODUCT
     Indication: GRAFT VERSUS HOST DISEASE
     Dosage: 906 MG, UNK
     Route: 042
     Dates: start: 20161121, end: 20161220
  4. TACRO [Concomitant]
     Active Substance: TACROLIMUS
     Indication: GRAFT VERSUS HOST DISEASE
     Route: 065

REACTIONS (4)
  - Gastritis [Not Recovered/Not Resolved]
  - Acute graft versus host disease [Not Recovered/Not Resolved]
  - Enterocolitis infectious [Recovered/Resolved]
  - Failure to thrive [Not Recovered/Not Resolved]

NARRATIVE: CASE EVENT DATE: 20170115
